FAERS Safety Report 4848651-4 (Version None)
Quarter: 2005Q4

REPORT INFORMATION
  Report Type: 
  Country: None (occurrence: None)
  Receive Date: 20051206
  Receipt Date: 20051123
  Transmission Date: 20060501
  Serious: Yes (Hospitalization)
  Sender: FDA-Public Use
  Company Number: 2005160892

PATIENT
  Age: 24 Year
  Sex: Male

DRUGS (2)
  1. ZIPRASIDONE HCL [Suspect]
     Indication: SCHIZOPHRENIA
     Dosage: 20 MG (20 MG, DAILY), ORAL
     Route: 048
     Dates: start: 20040511
  2. EQUASYM (METHYLPHENIDATE HYDROCHLORIDE) [Suspect]
     Indication: ATTENTION DEFICIT/HYPERACTIVITY DISORDER
     Dosage: 20 MG, ORAL
     Route: 048
     Dates: start: 20040511

REACTIONS (3)
  - BILIRUBIN CONJUGATED INCREASED [None]
  - BLOOD BILIRUBIN INCREASED [None]
  - PLATELET COUNT DECREASED [None]
